FAERS Safety Report 5565297-3 (Version None)
Quarter: 2007Q4

REPORT INFORMATION
  Report Type: 
  Country: None (occurrence: None)
  Receive Date: 20071218
  Receipt Date: 20020902
  Transmission Date: 20080405
  Serious: Yes (Death, Life-Threatening, Hospitalization)
  Sender: FDA-Public Use
  Company Number: JP-ROCHE-320082

PATIENT
  Age: 65 Year
  Sex: Female
  Weight: 47 kg

DRUGS (5)
  1. ROCEPHIN [Suspect]
     Dosage: ROUTE DESCRIBED AS DRIP.
     Route: 041
     Dates: start: 20020822, end: 20020824
  2. ROCEPHIN [Suspect]
     Dosage: ROUTE DESCRIBED AS DRIP.
     Route: 041
     Dates: start: 20020825, end: 20020826
  3. GENTACIN [Concomitant]
     Dosage: ROUTE REPORTED AS DRIP.
     Route: 050
     Dates: start: 20020827, end: 20020827
  4. VICCILLIN [Concomitant]
     Dosage: ROUTE REPORTED AS DRIP.
     Route: 050
     Dates: start: 20020827, end: 20020828
  5. MEROPEN [Concomitant]
     Dosage: ROUTE REPORTED AS DRIP.
     Route: 050
     Dates: start: 20020827, end: 20020828

REACTIONS (3)
  - ALTERED STATE OF CONSCIOUSNESS [None]
  - ENDOCARDITIS [None]
  - SEPTIC SHOCK [None]
